FAERS Safety Report 19025239 (Version 1)
Quarter: 2021Q1

REPORT INFORMATION
  Report Type: Spontaneous
  Country: US (occurrence: US)
  Receive Date: 20210316
  Receipt Date: 20210316
  Transmission Date: 20210420
  Serious: Yes (Hospitalization)
  Sender: FDA-Public Use
  Company Number: None

PATIENT
  Age: 77 Year
  Sex: Male
  Weight: 91 kg

DRUGS (1)
  1. PROPRANOLOL (PROPRANOLOL HCL 10MG TAB) [Suspect]
     Active Substance: PROPRANOLOL HYDROCHLORIDE
     Indication: TREMOR
     Route: 048
     Dates: start: 20200824, end: 20201202

REACTIONS (8)
  - Loss of personal independence in daily activities [None]
  - Syncope [None]
  - Hemiparesis [None]
  - Bradycardia [None]
  - Hyperkalaemia [None]
  - Fall [None]
  - Therapy interrupted [None]
  - Hyponatraemia [None]

NARRATIVE: CASE EVENT DATE: 20201127
